FAERS Safety Report 6890043-0 (Version None)
Quarter: 2010Q3

REPORT INFORMATION
  Report Type: 
  Country: None (occurrence: None)
  Receive Date: 20100730
  Receipt Date: 20080724
  Transmission Date: 20110219
  Serious: No
  Sender: FDA-Public Use
  Company Number: US-PFIZER INC-2008053753

PATIENT
  Sex: Male

DRUGS (4)
  1. LIPITOR [Suspect]
     Route: 048
     Dates: start: 20071101
  2. CARVEDILOL [Concomitant]
  3. MICARDIS [Concomitant]
  4. PROTONIX [Concomitant]

REACTIONS (1)
  - BLOOD CHOLESTEROL INCREASED [None]
